FAERS Safety Report 6618697-4 (Version None)
Quarter: 2010Q1

REPORT INFORMATION
  Report Type: 
  Country: None (occurrence: None)
  Receive Date: 20100305
  Receipt Date: 20100305
  Transmission Date: 20100710
  Serious: Yes (Disabling)
  Sender: FDA-Public Use
  Company Number: None

PATIENT
  Sex: Male
  Weight: 79.3795 kg

DRUGS (1)
  1. LEVAQUIN [Suspect]

REACTIONS (3)
  - SWELLING [None]
  - TENDON DISORDER [None]
  - TENDON PAIN [None]
